FAERS Safety Report 25747321 (Version 3)
Quarter: 2025Q4

REPORT INFORMATION
  Report Type: Spontaneous
  Country: US (occurrence: US)
  Receive Date: 20250901
  Receipt Date: 20251030
  Transmission Date: 20260117
  Serious: Yes (Hospitalization, Other)
  Sender: MERCK SHARP & DOHME LLC
  Company Number: US-009507513-2324145

PATIENT
  Age: 35 Year
  Sex: Male
  Weight: 65.771 kg

DRUGS (15)
  1. WINREVAIR [Suspect]
     Active Substance: SOTATERCEPT-CSRK
     Indication: Heritable pulmonary arterial hypertension
     Dosage: 6 DOSES  (0.7 MG/KG) 107 DAYS
     Route: 058
     Dates: start: 20240717
  2. WINREVAIR [Suspect]
     Active Substance: SOTATERCEPT-CSRK
  3. WINREVAIR [Suspect]
     Active Substance: SOTATERCEPT-CSRK
  4. WINREVAIR [Suspect]
     Active Substance: SOTATERCEPT-CSRK
  5. REMODULIN [Concomitant]
     Active Substance: TREPROSTINIL
     Indication: Heritable pulmonary arterial hypertension
     Dosage: INFUSE 10 MG INTO A VENOUS CATHETER EVERY OTHER DAY. 40 NG/KG/MIN
     Route: 042
  6. REMODULIN [Concomitant]
     Active Substance: TREPROSTINIL
     Indication: Heritable pulmonary arterial hypertension
     Dosage: CURRENT DOSE IS 36 ML/24H. PT TITRATING THE DOSE EVERY 48 HOURS UNTIL REACHING THE DOSE OF 42 ML/...
     Dates: start: 20240718
  7. MACITENTAN [Concomitant]
     Active Substance: MACITENTAN
     Indication: Heritable pulmonary arterial hypertension
     Dosage: TAKE 1 TABLET (10 MG) BY MOUTH DAILY.
     Route: 048
  8. TADALAFIL [Concomitant]
     Active Substance: TADALAFIL
     Indication: Heritable pulmonary arterial hypertension
     Dosage: TAKE 2 TABLETS (40 MG TOTAL) BY MOUTH DAILY. START WITH ONE TABLET BY MOUTH DAILY FOR ONE WEEK. I...
     Route: 048
  9. ADEMPAS [Concomitant]
     Active Substance: RIOCIGUAT
     Indication: Heritable pulmonary arterial hypertension
  10. COLCHICINE [Concomitant]
     Active Substance: COLCHICINE
     Dosage: TAKE 1 TABLET (0.6 MG) BY MOUTH DAILY.
     Route: 048
  11. LASIX [Concomitant]
     Active Substance: FUROSEMIDE
     Dosage: TAKE 1 TABLET (40 MG) BY MOUTH 2 (TWO) TIMES A DAY
     Route: 048
  12. ALDACTONE [Concomitant]
     Active Substance: SPIRONOLACTONE
     Dosage: TAKE 1 TABLET (50 MG) BY MOUTH DAILY.
     Route: 048
  13. PHENERGAN [Concomitant]
     Active Substance: PROMETHAZINE HYDROCHLORIDE
     Indication: Nausea
     Dosage: TIME INTERVAL: AS NECESSARY: TAKE 1 TABLET (25 MG) BY MOUTH EVERY 6 (SIX) HOURS AS NEEDED FOR NAU...
     Route: 048
  14. IMODIUM [Concomitant]
     Active Substance: LOPERAMIDE HYDROCHLORIDE
     Indication: Diarrhoea
     Dosage: TIME INTERVAL: AS NECESSARY: TAKE 1 CAPSULE (2 MG TOTAL) BY MOUTH AS NEEDED FOR DIARRHEA.
     Route: 048
  15. ZYRTEC [Concomitant]
     Active Substance: CETIRIZINE HYDROCHLORIDE
     Indication: Hypersensitivity
     Dosage: TIME INTERVAL: AS NECESSARY: TAKE 1 TABLET (10 MG TOTAL) BY MOUTH DAILY AS NEEDED FOR ALLERGIES
     Route: 048

REACTIONS (16)
  - Cardiac failure acute [Unknown]
  - Pericardial effusion [Recovered/Resolved]
  - White blood cell count increased [Unknown]
  - Haemoglobin increased [Unknown]
  - Haematocrit increased [Unknown]
  - Carbon dioxide decreased [Unknown]
  - Pericarditis [Unknown]
  - Platelet count abnormal [Unknown]
  - Blood potassium decreased [Unknown]
  - Pulmonary artery dilatation [Unknown]
  - Pulmonary congestion [Unknown]
  - Atelectasis [Unknown]
  - Fatigue [Unknown]
  - Abdominal distension [Unknown]
  - Weight decreased [Unknown]
  - Drug ineffective [Unknown]

NARRATIVE: CASE EVENT DATE: 20241101
